FAERS Safety Report 5451081-8 (Version None)
Quarter: 2007Q3

REPORT INFORMATION
  Report Type: 
  Country: None (occurrence: None)
  Receive Date: 20070911
  Receipt Date: 20070906
  Transmission Date: 20080115
  Serious: Yes (Hospitalization)
  Sender: FDA-Public Use
  Company Number: 2007AL003710

PATIENT
  Age: 58 Year
  Sex: Female

DRUGS (6)
  1. DIAZEPAM [Suspect]
  2. CLONAZEPAM [Suspect]
  3. PREGABALIN [Concomitant]
  4. ZOLPIDEM TARTRATE [Concomitant]
  5. PANADOL [Concomitant]
  6. NUROFEN [Concomitant]

REACTIONS (9)
  - BLADDER DISORDER [None]
  - DRUG WITHDRAWAL SYNDROME [None]
  - FEELING ABNORMAL [None]
  - HYPOAESTHESIA [None]
  - INSOMNIA [None]
  - MALAISE [None]
  - MUSCLE TIGHTNESS [None]
  - MUSCULAR WEAKNESS [None]
  - SPEECH DISORDER [None]
